FAERS Safety Report 6394451-6 (Version None)
Quarter: 2009Q4

REPORT INFORMATION
  Report Type: 
  Country: None (occurrence: None)
  Receive Date: 20091009
  Receipt Date: 20090929
  Transmission Date: 20100525
  Serious: Yes (Hospitalization, Other)
  Sender: FDA-Public Use
  Company Number: US-BIOGENIDEC-2009BI031123

PATIENT
  Age: 62 Year
  Sex: Female
  Weight: 60 kg

DRUGS (4)
  1. AVONEX [Suspect]
     Indication: MULTIPLE SCLEROSIS
     Route: 030
     Dates: start: 20090401, end: 20090401
  2. AVONEX [Suspect]
     Route: 030
     Dates: start: 20090401, end: 20090501
  3. AVONEX [Suspect]
     Route: 030
     Dates: start: 20090701
  4. COREG [Concomitant]
     Indication: PALPITATIONS
     Route: 048
     Dates: start: 20080101

REACTIONS (10)
  - ARTHRALGIA [None]
  - DEVICE EXTRUSION [None]
  - EJECTION FRACTION DECREASED [None]
  - FALL [None]
  - IMPLANT SITE INFECTION [None]
  - JOINT SWELLING [None]
  - LIMB INJURY [None]
  - NAIL AVULSION [None]
  - PERONEAL NERVE PALSY [None]
  - SCAR [None]
